FAERS Safety Report 25737999 (Version 1)
Quarter: 2025Q3

REPORT INFORMATION
  Report Type: Spontaneous
  Country: JP (occurrence: JP)
  Receive Date: 20250829
  Receipt Date: 20250829
  Transmission Date: 20251020
  Serious: Yes (Hospitalization, Other)
  Sender: NOVARTIS
  Company Number: JP-002147023-NVSJ2025JP004888

PATIENT
  Age: 78 Year
  Sex: Male
  Weight: 73.2 kg

DRUGS (1)
  1. TASIGNA [Suspect]
     Active Substance: NILOTINIB
     Indication: Chronic myeloid leukaemia
     Dosage: 150 MG, BID
     Route: 048
     Dates: start: 201807

REACTIONS (5)
  - Thrombotic microangiopathy [Recovered/Resolved with Sequelae]
  - Protein urine [Not Recovered/Not Resolved]
  - Glomerular vascular disorder [Unknown]
  - Haematuria [Recovering/Resolving]
  - Henoch-Schonlein purpura [Recovered/Resolved with Sequelae]

NARRATIVE: CASE EVENT DATE: 20240925
